FAERS Safety Report 14348714 (Version 2)
Quarter: 2018Q1

REPORT INFORMATION
  Report Type: Report from Study
  Country: None (occurrence: NL)
  Receive Date: 20180104
  Receipt Date: 20180104
  Transmission Date: 20180509
  Serious: Yes (Death, Other)
  Sender: FDA-Public Use
  Company Number: NL-ABBVIE-18S-114-2210220-00

PATIENT
  Age: 63 Year
  Sex: Male
  Weight: 65 kg

DRUGS (2)
  1. LUCRIN DEPOT [Suspect]
     Active Substance: LEUPROLIDE ACETATE
     Route: 050
  2. LUCRIN DEPOT [Suspect]
     Active Substance: LEUPROLIDE ACETATE
     Indication: PROSTATE CANCER
     Route: 050
     Dates: start: 20130501, end: 20170925

REACTIONS (2)
  - Cerebral infarction [Fatal]
  - Cerebral infarction [Unknown]

NARRATIVE: CASE EVENT DATE: 20171218
